FAERS Safety Report 20835434 (Version 2)
Quarter: 2022Q2

REPORT INFORMATION
  Report Type: Report from Study
  Country: CA (occurrence: CA)
  Receive Date: 20220516
  Receipt Date: 20220601
  Transmission Date: 20220721
  Serious: Yes (Death, Hospitalization)
  Sender: FDA-Public Use
  Company Number: CA-BAYER-2022A066364

PATIENT
  Age: 79 Year
  Sex: Female

DRUGS (12)
  1. ADEMPAS [Suspect]
     Active Substance: RIOCIGUAT
     Indication: Pulmonary arterial hypertension
     Dosage: 1.5 MG
     Dates: start: 20170703, end: 20220509
  2. CALCIUM [Concomitant]
     Active Substance: CALCIUM
  3. FUROSEMIDE [Concomitant]
     Active Substance: FUROSEMIDE
  4. VITAMIN B12 [Concomitant]
     Active Substance: CYANOCOBALAMIN
  5. PANTOPRAZOLE [Concomitant]
     Active Substance: PANTOPRAZOLE
  6. SYNTHROID [Concomitant]
     Active Substance: LEVOTHYROXINE SODIUM
  7. ROSUVASTATIN [Concomitant]
     Active Substance: ROSUVASTATIN
  8. VITAMIN D NOS [Concomitant]
     Active Substance: VITAMIN D NOS
  9. METHOTREXATE [Concomitant]
     Active Substance: METHOTREXATE
  10. LEUCOVORIN [Concomitant]
     Active Substance: LEUCOVORIN
  11. RITUXAN [Concomitant]
     Active Substance: RITUXIMAB
  12. LEUCOVORIN [Concomitant]
     Active Substance: LEUCOVORIN

REACTIONS (6)
  - COVID-19 pneumonia [Fatal]
  - Respiratory failure [Fatal]
  - Hypoxia [Fatal]
  - Dementia [Unknown]
  - Seizure [Unknown]
  - Neurodegenerative disorder [Unknown]

NARRATIVE: CASE EVENT DATE: 20220427
